FAERS Safety Report 8560611-9 (Version None)
Quarter: 2012Q3

REPORT INFORMATION
  Report Type: 
  Country: None (occurrence: None)
  Receive Date: 20120802
  Receipt Date: 20120730
  Transmission Date: 20120928
  Serious: No
  Sender: FDA-Public Use
  Company Number: US-TEVA-351337USA

PATIENT
  Sex: Female
  Weight: 68.1 kg

DRUGS (1)
  1. COPAXONE [Suspect]
     Indication: MULTIPLE SCLEROSIS
     Dosage: 20 MILLIGRAM;
     Route: 058
     Dates: start: 20040801

REACTIONS (8)
  - ERYTHEMA [None]
  - DYSPNOEA [None]
  - CHEST DISCOMFORT [None]
  - TREMOR [None]
  - HEART RATE INCREASED [None]
  - ABDOMINAL DISCOMFORT [None]
  - IMMEDIATE POST-INJECTION REACTION [None]
  - MUSCULOSKELETAL DISCOMFORT [None]
